FAERS Safety Report 20682599 (Version 2)
Quarter: 2022Q2

REPORT INFORMATION
  Report Type: Spontaneous
  Country: FR (occurrence: FR)
  Receive Date: 20220407
  Receipt Date: 20220418
  Transmission Date: 20220721
  Serious: Yes (Hospitalization)
  Sender: FDA-Public Use
  Company Number: FR-AFSSAPS-PP20220281

PATIENT
  Age: 36 Year
  Sex: Male

DRUGS (10)
  1. DROPERIDOL [Suspect]
     Active Substance: DROPERIDOL
     Indication: Nausea
     Dosage: 1.25 MILLIGRAM, ONCE A DAY
     Route: 042
     Dates: start: 20211224, end: 20211224
  2. IBUPROFEN [Suspect]
     Active Substance: IBUPROFEN
     Indication: Pain
     Dosage: 400 MILLIGRAM, ONCE A DAY
     Route: 048
     Dates: start: 20211220, end: 20211220
  3. ULTRAVIST [Suspect]
     Active Substance: IOPROMIDE
     Indication: Computerised tomogram
     Dosage: 1 DOSAGE FORM
     Route: 042
     Dates: start: 20211222, end: 20211222
  4. PHLOROGLUCINOL [Suspect]
     Active Substance: PHLOROGLUCINOL
     Indication: Pain
     Dosage: UNK (40 MG+40 ?G/4 ML, (SINGLE ADMINISTRATION OF 2 VIALS OF 40MG))
     Route: 042
     Dates: start: 20211222, end: 20211222
  5. PROPOFOL [Suspect]
     Active Substance: PROPOFOL
     Indication: General anaesthesia
     Dosage: 30 MILLIGRAM (RENEWED 7X)
     Route: 042
     Dates: start: 20211224, end: 20211224
  6. ONDANSETRON [Suspect]
     Active Substance: ONDANSETRON
     Indication: Nausea
     Dosage: 4 MILLIGRAM, ONCE A DAY
     Route: 042
     Dates: start: 20211224, end: 20211224
  7. CEFUROXIME AXETIL [Suspect]
     Active Substance: CEFUROXIME AXETIL
     Indication: Infection
     Dosage: 1 DOSAGE FORM
     Route: 042
     Dates: start: 20211224, end: 20211224
  8. CEFUROXIME AXETIL [Suspect]
     Active Substance: CEFUROXIME AXETIL
     Indication: Nausea
  9. REMIFENTANIL [Suspect]
     Active Substance: REMIFENTANIL
     Indication: General anaesthesia
     Dosage: 8 MICROGRAM (2 ?G RENEWS 4 TIMES)
     Route: 042
     Dates: start: 20211224, end: 20211224
  10. REMIFENTANIL [Suspect]
     Active Substance: REMIFENTANIL
     Dosage: 32 MICROGRAM, ONCE A DAY
     Route: 042
     Dates: start: 20211224, end: 20211224

REACTIONS (1)
  - Fixed eruption [Recovered/Resolved]

NARRATIVE: CASE EVENT DATE: 20211224
